FAERS Safety Report 4828464-X (Version None)
Quarter: 2005Q4

REPORT INFORMATION
  Report Type: 
  Country: None (occurrence: None)
  Receive Date: 20051110
  Receipt Date: 20051103
  Transmission Date: 20060501
  Serious: Yes (Hospitalization)
  Sender: FDA-Public Use
  Company Number: THQ2005A00551

PATIENT
  Age: 73 Year
  Sex: Female

DRUGS (10)
  1. PIOGLITAZONE HCL [Suspect]
     Indication: DIABETES MELLITUS
     Dosage: 30 MG (30 MG, 1 IN 1 D) PER ORAL
     Route: 048
     Dates: end: 20050222
  2. PIOGLITAZONE HCL [Suspect]
     Indication: DIABETES MELLITUS
     Dosage: 30 MG (30 MG, 1 IN 1 D) PER ORAL
     Route: 048
     Dates: start: 20040512
  3. LIPITOR [Concomitant]
  4. ATIVAN [Concomitant]
  5. GLUCOPHAGE [Concomitant]
  6. MONOCOR (BISOPROLOL FUMARATE) [Concomitant]
  7. SYNTHROID [Concomitant]
  8. AVALIDE (KARVEA HCT) [Concomitant]
  9. ADALAT [Concomitant]
  10. ASAPHEN (ACETYLSALICYLIC ACID) [Concomitant]

REACTIONS (13)
  - BLOOD PRESSURE SYSTOLIC INCREASED [None]
  - CHEST X-RAY ABNORMAL [None]
  - CORONARY ARTERY OCCLUSION [None]
  - CORONARY OSTIAL STENOSIS [None]
  - DYSPNOEA EXERTIONAL [None]
  - EJECTION FRACTION DECREASED [None]
  - IRON DEFICIENCY ANAEMIA [None]
  - JUGULAR VEIN DISTENSION [None]
  - MYOCARDIAL INFARCTION [None]
  - MYOCARDIAL ISCHAEMIA [None]
  - OEDEMA PERIPHERAL [None]
  - PULMONARY OEDEMA [None]
  - VENTRICULAR HYPOKINESIA [None]
